FAERS Safety Report 5343434-3 (Version None)
Quarter: 2007Q2

REPORT INFORMATION
  Report Type: 
  Country: None (occurrence: None)
  Receive Date: 20070531
  Receipt Date: 20070523
  Transmission Date: 20071010
  Serious: Yes (Hospitalization)
  Sender: FDA-Public Use
  Company Number: 2007SP010123

PATIENT
  Age: 73 Year
  Sex: Female

DRUGS (3)
  1. DIPROSTENE (BETAMETHASONE SODIUM PHOSPHATE/DIPROPIONATE) (BETAMETHASON [Suspect]
     Indication: SCIATICA
     Dosage: ONCE
     Dates: start: 20070101, end: 20070101
  2. ENBREL [Suspect]
     Indication: RHEUMATOID ARTHRITIS
     Dosage: 25 MG; BIW; SC
     Route: 058
     Dates: start: 20050508, end: 20070126
  3. METHOTREXATE [Suspect]
     Indication: RHEUMATOID ARTHRITIS
     Dates: start: 19960101

REACTIONS (3)
  - HERPES ZOSTER DISSEMINATED [None]
  - SCIATICA [None]
  - SKIN LESION [None]
